FAERS Safety Report 6822716-X (Version None)
Quarter: 2010Q3

REPORT INFORMATION
  Report Type: 
  Country: None (occurrence: None)
  Receive Date: 20100708
  Receipt Date: 20100629
  Transmission Date: 20110219
  Serious: Yes (Other)
  Sender: FDA-Public Use
  Company Number: GB-PFIZER INC-2009232555

PATIENT
  Age: 61 Year
  Sex: Female

DRUGS (4)
  1. CHAMPIX [Suspect]
     Indication: SMOKING CESSATION THERAPY
     Dosage: 1 MG, 2X/DAY
     Route: 048
     Dates: start: 20090408
  2. SIMVASTATIN [Concomitant]
     Indication: HYPERCHOLESTEROLAEMIA
     Dosage: 40 MG, 1X/DAY
     Dates: start: 20070701
  3. SOLPADOL [Concomitant]
     Indication: PAIN
     Dosage: UNK
     Dates: start: 20070306
  4. RAMIPRIL [Concomitant]
     Dosage: 2.5 MG, UNK
     Dates: start: 20070701

REACTIONS (2)
  - HANGOVER [None]
  - TREMOR [None]
